FAERS Safety Report 17098030 (Version 1)
Quarter: 2019Q4

REPORT INFORMATION
  Report Type: Other
  Country: US (occurrence: US)
  Receive Date: 20191202
  Receipt Date: 20191202
  Transmission Date: 20200122
  Serious: Yes (Life-Threatening, Hospitalization, Other)
  Sender: FDA-Public Use
  Company Number: US-P+L DEVELOPMENTS OF NEWYORK CORPORATION-2077356

PATIENT
  Age: 14 Year
  Sex: Male

DRUGS (1)
  1. IBUPROFEN. [Suspect]
     Active Substance: IBUPROFEN
     Indication: PRODUCT USED FOR UNKNOWN INDICATION
     Route: 065

REACTIONS (9)
  - Haemophagocytic lymphohistiocytosis [Recovering/Resolving]
  - Shock [Unknown]
  - Lactic acidosis [Unknown]
  - Acute kidney injury [Unknown]
  - Dermatitis bullous [Recovering/Resolving]
  - Multiple organ dysfunction syndrome [Unknown]
  - Transaminases increased [Unknown]
  - Hypotension [Unknown]
  - Pyrexia [Unknown]
